FAERS Safety Report 9163127 (Version 1)
Quarter: 2013Q1

REPORT INFORMATION
  Report Type: Spontaneous
  Country: US (occurrence: None)
  Receive Date: 20130225
  Receipt Date: 20130225
  Transmission Date: 20140127
  Serious: Yes (Hospitalization)
  Sender: FDA-Public Use
  Company Number: VAL_01407_2013

PATIENT
  Sex: Male

DRUGS (18)
  1. LOPRESSOR [Suspect]
     Indication: PRODUCT USED FOR UNKNOWN INDICATION
  2. SAXAGLIPTIN [Suspect]
     Indication: TYPE 2 DIABETES MELLITUS
     Dosage: (DF)
     Dates: start: 20110722, end: 20121206
  3. METFORMIN HCL [Suspect]
     Indication: TYPE 2 DIABETES MELLITUS
     Dates: end: 20120321
  4. HUMALOG [Suspect]
     Indication: TYPE 2 DIABETES MELLITUS
     Dates: end: 20120101
  5. LANTUS [Suspect]
     Indication: TYPE 2 DIABETES MELLITUS
  6. NOVOLOG [Suspect]
     Indication: TYPE 2 DIABETES MELLITUS
     Dosage: (DF)
     Dates: start: 20111231
  7. PLACEBO [Suspect]
     Indication: TYPE 2 DIABETES MELLITUS
     Dosage: (DF)
     Dates: start: 20110722, end: 20121206
  8. PERCOCET /00867901/ [Suspect]
     Indication: PRODUCT USED FOR UNKNOWN INDICATION
  9. XANAX [Suspect]
     Indication: PRODUCT USED FOR UNKNOWN INDICATION
  10. OXYCONTIN [Suspect]
     Indication: PRODUCT USED FOR UNKNOWN INDICATION
     Dates: start: 20111231
  11. NEURONTIN [Suspect]
     Indication: PRODUCT USED FOR UNKNOWN INDICATION
  12. NORCO [Suspect]
     Indication: PRODUCT USED FOR UNKNOWN INDICATION
     Dosage: (DF)
  13. SIMVASTATIN [Suspect]
     Indication: PRODUCT USED FOR UNKNOWN INDICATION
  14. NORVASC [Suspect]
     Indication: PRODUCT USED FOR UNKNOWN INDICATION
  15. HYDRALAZINE [Suspect]
     Indication: PRODUCT USED FOR UNKNOWN INDICATION
  16. PROTONIX [Suspect]
     Indication: PRODUCT USED FOR UNKNOWN INDICATION
  17. LISINOPRIL [Suspect]
     Indication: PRODUCT USED FOR UNKNOWN INDICATION
  18. ASPIRIN [Concomitant]

REACTIONS (11)
  - Depression [None]
  - Pain [None]
  - Condition aggravated [None]
  - Drug dependence [None]
  - Drug abuse [None]
  - Pulmonary oedema [None]
  - Drug screen positive [None]
  - Drug dependence [None]
  - Intentional overdose [None]
  - Therapy cessation [None]
  - Foot fracture [None]
